FAERS Safety Report 7975751-2 (Version None)
Quarter: 2011Q4

REPORT INFORMATION
  Report Type: 
  Country: None (occurrence: None)
  Receive Date: 20111213
  Receipt Date: 20110921
  Transmission Date: 20120403
  Serious: No
  Sender: FDA-Public Use
  Company Number: US-AMGEN-USASP2011048834

PATIENT
  Sex: Female

DRUGS (5)
  1. DIOVAN [Concomitant]
     Dosage: UNK
  2. ENBREL [Suspect]
     Indication: POLYARTHRITIS
     Dosage: 50 MG, QWK
     Dates: start: 19990101
  3. PLAVIX [Concomitant]
     Dosage: UNK
  4. XIFAXAN [Concomitant]
     Dosage: UNK
  5. ATENOLOL [Concomitant]
     Dosage: UNK

REACTIONS (1)
  - INJECTION SITE PAIN [None]
